FAERS Safety Report 6112315-X (Version None)
Quarter: 2009Q1

REPORT INFORMATION
  Report Type: 
  Country: None (occurrence: None)
  Receive Date: 20090311
  Receipt Date: 20090311
  Transmission Date: 20090719
  Serious: Yes (Death)
  Sender: FDA-Public Use
  Company Number: None

PATIENT
  Sex: Female
  Weight: 58.0604 kg

DRUGS (2)
  1. REMODULIN [Suspect]
     Indication: PULMONARY HYPERTENSION
     Dosage: DOSAGE WAS PROGRESSIVE PUMP SUBQ
     Route: 058
     Dates: start: 20080616
  2. TRACLEER [Concomitant]

REACTIONS (14)
  - ABDOMINAL DISTENSION [None]
  - ASTHENIA [None]
  - BACK PAIN [None]
  - CHEST PAIN [None]
  - CYANOSIS [None]
  - DIARRHOEA [None]
  - DYSPNOEA [None]
  - ERYTHEMA [None]
  - GENERAL PHYSICAL HEALTH DETERIORATION [None]
  - HYPERHIDROSIS [None]
  - IMPAIRED WORK ABILITY [None]
  - NAUSEA [None]
  - PAIN [None]
  - WEIGHT DECREASED [None]
